FAERS Safety Report 24042138 (Version 1)
Quarter: 2024Q3

REPORT INFORMATION
  Report Type: Spontaneous
  Country: CN (occurrence: CN)
  Receive Date: 20240702
  Receipt Date: 20240702
  Transmission Date: 20241017
  Serious: Yes (Hospitalization)
  Sender: PFIZER
  Company Number: CN-PFIZER INC-PV202400085711

PATIENT
  Age: 66 Year
  Sex: Female
  Weight: 60 kg

DRUGS (2)
  1. AROMASIN [Suspect]
     Active Substance: EXEMESTANE
     Indication: Breast cancer
     Dosage: 25 MG, 1X/DAY
     Route: 048
     Dates: start: 20240509, end: 20240618
  2. VERZENIO [Suspect]
     Active Substance: ABEMACICLIB
     Indication: Breast cancer
     Dosage: 150.000 MG, 2X/DAY
     Route: 048
     Dates: start: 20240509, end: 20240618

REACTIONS (1)
  - Drug-induced liver injury [Recovering/Resolving]

NARRATIVE: CASE EVENT DATE: 20240613
